FAERS Safety Report 8582428-1 (Version None)
Quarter: 2012Q3

REPORT INFORMATION
  Report Type: 
  Country: None (occurrence: None)
  Receive Date: 20120809
  Receipt Date: 20120803
  Transmission Date: 20120928
  Serious: Yes (Other)
  Sender: FDA-Public Use
  Company Number: FR-VIIV HEALTHCARE LIMITED-B0820564A

PATIENT
  Sex: Female

DRUGS (6)
  1. DILTIAZEM HCL [Concomitant]
     Route: 048
     Dates: start: 20000101
  2. ASPIRIN [Concomitant]
     Route: 048
     Dates: start: 20000101
  3. ZIAGEN [Suspect]
     Indication: HIV INFECTION
     Route: 048
     Dates: start: 20000101
  4. ZERIT [Suspect]
     Indication: HIV INFECTION
     Dosage: 30MG TWICE PER DAY
     Route: 048
     Dates: start: 19970101, end: 20090101
  5. VIDEX [Suspect]
     Indication: HIV INFECTION
     Route: 048
     Dates: start: 20000101, end: 20090101
  6. ATORVASTATIN [Concomitant]
     Route: 048
     Dates: start: 20000101

REACTIONS (2)
  - LIPOMA [None]
  - LIPOHYPERTROPHY [None]
